FAERS Safety Report 4489297-X (Version None)
Quarter: 2004Q4

REPORT INFORMATION
  Report Type: 
  Country: None (occurrence: None)
  Receive Date: 20041026
  Receipt Date: 20041018
  Transmission Date: 20050328
  Serious: Yes (Hospitalization)
  Sender: FDA-Public Use
  Company Number: DEWYE115618OCT04

PATIENT
  Age: 40 Year
  Sex: Female

DRUGS (3)
  1. TAVOR          (LORAZEPAM) [Suspect]
     Dosage: ORAL
     Route: 048
     Dates: start: 20041017, end: 20041017
  2. TRIMIPRAMINE MALEATE [Suspect]
     Dosage: ORAL
     Route: 048
     Dates: start: 20041017, end: 20041017
  3. VENLAFAXINE HCL [Suspect]
     Dosage: ORAL
     Route: 048
     Dates: start: 20041017, end: 20041017

REACTIONS (3)
  - INTENTIONAL OVERDOSE [None]
  - SOPOR [None]
  - TACHYCARDIA [None]
